FAERS Safety Report 8233436-1 (Version None)
Quarter: 2012Q1

REPORT INFORMATION
  Report Type: 
  Country: None (occurrence: None)
  Receive Date: 20120326
  Receipt Date: 20120319
  Transmission Date: 20120608
  Serious: Yes (Other)
  Sender: FDA-Public Use
  Company Number: US-VERTEX PHARMACEUTICALS INC.-AE-2012-003925

PATIENT

DRUGS (4)
  1. RIBAVIRIN [Concomitant]
     Indication: HEPATITIS C
     Dates: end: 20120301
  2. PEGASYS [Concomitant]
     Indication: HEPATITIS C
     Dates: end: 20120309
  3. INCIVEK [Suspect]
     Indication: HEPATITIS C
     Route: 048
  4. RIBAVIRIN [Concomitant]
     Dates: end: 20120309

REACTIONS (4)
  - EOSINOPHIL COUNT INCREASED [None]
  - SWELLING FACE [None]
  - RASH [None]
  - EYE SWELLING [None]
